FAERS Safety Report 5932254-4 (Version None)
Quarter: 2008Q4

REPORT INFORMATION
  Report Type: 
  Country: None (occurrence: None)
  Receive Date: 20081028
  Receipt Date: 20081024
  Transmission Date: 20090506
  Serious: Yes (Hospitalization)
  Sender: FDA-Public Use
  Company Number: GB-BRISTOL-MYERS SQUIBB COMPANY-14383558

PATIENT
  Age: 55 Year
  Sex: Male

DRUGS (3)
  1. REYATAZ [Suspect]
     Indication: HIV INFECTION
     Route: 048
     Dates: start: 20051201
  2. KALETRA [Concomitant]
     Dates: start: 20051201
  3. NEVIRAPINE [Concomitant]
     Dates: start: 20051201

REACTIONS (1)
  - RENAL COLIC [None]
